FAERS Safety Report 9238784 (Version 1)
Quarter: 2013Q1

REPORT INFORMATION
  Report Type: Spontaneous
  Country: US (occurrence: None)
  Receive Date: 20121101
  Receipt Date: 20121101
  Transmission Date: 20140127
  Serious: Yes (Other)
  Sender: FDA-Public Use
  Company Number: 325526USA

PATIENT
  Sex: Male

DRUGS (1)
  1. MERCAPTOPURINE [Suspect]
     Indication: CROHN^S DISEASE
     Route: 048
     Dates: start: 1999

REACTIONS (4)
  - Haematocrit decreased [None]
  - Haematocrit decreased [None]
  - Bone marrow disorder [None]
  - Blood iron decreased [None]
